FAERS Safety Report 25556305 (Version 1)
Quarter: 2025Q3

REPORT INFORMATION
  Report Type: Spontaneous
  Country: US (occurrence: US)
  Receive Date: 20250715
  Receipt Date: 20250715
  Transmission Date: 20251021
  Serious: No
  Sender: ELI LILLY AND COMPANY
  Company Number: US-ELI_LILLY_AND_COMPANY-US202507009322

PATIENT
  Age: 77 Year
  Sex: Male

DRUGS (13)
  1. MOUNJARO [Suspect]
     Active Substance: TIRZEPATIDE
     Indication: Nephropathy
     Route: 065
     Dates: start: 20240804
  2. MOUNJARO [Suspect]
     Active Substance: TIRZEPATIDE
     Indication: Nephropathy
     Route: 065
     Dates: start: 20240804
  3. MOUNJARO [Suspect]
     Active Substance: TIRZEPATIDE
     Indication: Nephropathy
     Route: 065
     Dates: start: 20240804
  4. MOUNJARO [Suspect]
     Active Substance: TIRZEPATIDE
     Indication: Nephropathy
     Route: 065
     Dates: start: 20240804
  5. MOUNJARO [Suspect]
     Active Substance: TIRZEPATIDE
     Indication: Nephropathy
     Route: 065
  6. MOUNJARO [Suspect]
     Active Substance: TIRZEPATIDE
     Indication: Nephropathy
     Route: 065
  7. MOUNJARO [Suspect]
     Active Substance: TIRZEPATIDE
     Indication: Nephropathy
     Route: 065
  8. MOUNJARO [Suspect]
     Active Substance: TIRZEPATIDE
     Indication: Nephropathy
     Route: 065
  9. MOUNJARO [Suspect]
     Active Substance: TIRZEPATIDE
     Route: 065
  10. MOUNJARO [Suspect]
     Active Substance: TIRZEPATIDE
     Route: 065
  11. MOUNJARO [Suspect]
     Active Substance: TIRZEPATIDE
     Route: 065
  12. MOUNJARO [Suspect]
     Active Substance: TIRZEPATIDE
     Route: 065
  13. OZEMPIC [Concomitant]
     Active Substance: SEMAGLUTIDE
     Indication: Product used for unknown indication

REACTIONS (4)
  - Off label use [Unknown]
  - Nausea [Unknown]
  - Diarrhoea [Unknown]
  - Vomiting [Unknown]

NARRATIVE: CASE EVENT DATE: 20240804
